FAERS Safety Report 11826917 (Version 1)
Quarter: 2015Q4

REPORT INFORMATION
  Report Type: Spontaneous
  Country: FR (occurrence: FR)
  Receive Date: 20151211
  Receipt Date: 20151211
  Transmission Date: 20160305
  Serious: Yes (Life-Threatening, Hospitalization)
  Sender: FDA-Public Use
  Company Number: US-ASTRAZENECA-2015SF23180

PATIENT
  Age: 125 Day
  Sex: Female

DRUGS (1)
  1. PALIVIZUMAB [Suspect]
     Active Substance: PALIVIZUMAB
     Indication: PRODUCT USED FOR UNKNOWN INDICATION
     Route: 030
     Dates: start: 20151015, end: 20151112

REACTIONS (2)
  - Purpura [Not Recovered/Not Resolved]
  - Respiratory syncytial virus bronchiolitis [Not Recovered/Not Resolved]

NARRATIVE: CASE EVENT DATE: 20151115
